FAERS Safety Report 7295342-9 (Version None)
Quarter: 2011Q1

REPORT INFORMATION
  Report Type: 
  Country: None (occurrence: None)
  Receive Date: 20110211
  Receipt Date: 20110211
  Transmission Date: 20110831
  Serious: Yes (Hospitalization)
  Sender: FDA-Public Use
  Company Number: None

PATIENT
  Age: 55 Year
  Sex: Female

DRUGS (11)
  1. NASACORT [Concomitant]
  2. LEVOTHYROXINE [Concomitant]
  3. CRESTOR [Concomitant]
  4. ESTRADIOL [Concomitant]
  5. HYDROCHLOROTHIAZIDE [Concomitant]
  6. RECLAST [Suspect]
  7. ASPIRIN [Concomitant]
  8. LISINOPRIL [Concomitant]
  9. ACTOPLUS MET [Concomitant]
  10. NEXIUM [Concomitant]
  11. METFORMIN [Concomitant]

REACTIONS (1)
  - RENAL FAILURE ACUTE [None]
